FAERS Safety Report 16354235 (Version 1)
Quarter: 2019Q2

REPORT INFORMATION
  Report Type: Spontaneous
  Country: US (occurrence: US)
  Receive Date: 20190524
  Receipt Date: 20190524
  Transmission Date: 20190711
  Serious: No
  Sender: FDA-Public Use
  Company Number: US-BAUSCH-BL-2019-013818

PATIENT
  Sex: Female

DRUGS (2)
  1. ALAWAY [Suspect]
     Active Substance: KETOTIFEN FUMARATE
     Indication: SUPERFICIAL INJURY OF EYE
     Dosage: ONE DROP INTO EACH EYE
     Route: 047
     Dates: start: 20190507, end: 20190507
  2. ALAWAY [Suspect]
     Active Substance: KETOTIFEN FUMARATE
     Indication: EYE ALLERGY

REACTIONS (3)
  - Dry eye [Recovered/Resolved]
  - Eye irritation [Recovered/Resolved]
  - Lacrimation decreased [Not Recovered/Not Resolved]

NARRATIVE: CASE EVENT DATE: 20190507
